FAERS Safety Report 10927978 (Version 1)
Quarter: 2015Q1

REPORT INFORMATION
  Report Type: Spontaneous
  Country: None (occurrence: None)
  Receive Date: 20150317
  Receipt Date: 20150317
  Transmission Date: 20150721
  Serious: Yes (Disabling, Other)
  Sender: FDA-Public Use
  Company Number: None

PATIENT
  Age: 47 Year
  Sex: Female
  Weight: 61.24 kg

DRUGS (1)
  1. ABILIFY [Suspect]
     Active Substance: ARIPIPRAZOLE
     Indication: DEPRESSION
     Dosage: TAKEN BY MOOUTH

REACTIONS (9)
  - Muscle twitching [None]
  - Grimacing [None]
  - Glucose tolerance impaired [None]
  - Movement disorder [None]
  - Tremor [None]
  - Quality of life decreased [None]
  - Tardive dyskinesia [None]
  - Dyskinesia [None]
  - Tongue movement disturbance [None]

NARRATIVE: CASE EVENT DATE: 20141201
